FAERS Safety Report 17728408 (Version 1)
Quarter: 2020Q2

REPORT INFORMATION
  Report Type: Report from Study
  Country: US (occurrence: US)
  Receive Date: 20200430
  Receipt Date: 20200430
  Transmission Date: 20200714
  Serious: No
  Sender: FDA-Public Use
  Company Number: NVSC2020US116474

PATIENT
  Sex: Female
  Weight: 50.88 kg

DRUGS (1)
  1. ILARIS [Suspect]
     Active Substance: CANAKINUMAB
     Indication: AMYLOIDOSIS
     Dosage: 67.2 MG, EVERY 8 WEEKS
     Route: 058

REACTIONS (2)
  - Product dose omission [Unknown]
  - Urticaria [Unknown]
